FAERS Safety Report 24765537 (Version 1)
Quarter: 2024Q4

REPORT INFORMATION
  Report Type: Spontaneous
  Country: US (occurrence: None)
  Receive Date: 20241220
  Receipt Date: 20241220
  Transmission Date: 20250115
  Serious: Yes (Disabling)
  Sender: Public
  Company Number: None

PATIENT
  Sex: Male

DRUGS (1)
  1. ZOLOFT [Suspect]
     Active Substance: SERTRALINE HYDROCHLORIDE
     Indication: Anxiety
     Route: 048
     Dates: start: 20170801, end: 20180601

REACTIONS (7)
  - Genital paraesthesia [None]
  - Ejaculation delayed [None]
  - Ejaculation failure [None]
  - Anorgasmia [None]
  - Libido decreased [None]
  - Therapy cessation [None]
  - Orgasm abnormal [None]

NARRATIVE: CASE EVENT DATE: 20170801
